FAERS Safety Report 11397228 (Version 2)
Quarter: 2015Q4

REPORT INFORMATION
  Report Type: Spontaneous
  Country: US (occurrence: US)
  Receive Date: 20150819
  Receipt Date: 20151012
  Transmission Date: 20160304
  Serious: Yes (Death, Other)
  Sender: FDA-Public Use
  Company Number: US-UCBSA-2015026154

PATIENT
  Age: 57 Year
  Sex: Male
  Weight: 84.3 kg

DRUGS (1)
  1. CIMZIA [Suspect]
     Active Substance: CERTOLIZUMAB PEGOL
     Indication: ENTERITIS
     Dosage: 400 MG, EV 4 WEEKS
     Route: 058
     Dates: start: 20141208, end: 20150811

REACTIONS (5)
  - Death [Fatal]
  - Sepsis [Unknown]
  - Abscess [Unknown]
  - White blood cell count increased [Unknown]
  - Intestinal perforation [Unknown]

NARRATIVE: CASE EVENT DATE: 20150811
